FAERS Safety Report 12961540 (Version 1)
Quarter: 2016Q4

REPORT INFORMATION
  Report Type: Spontaneous
  Country: US (occurrence: US)
  Receive Date: 20161121
  Receipt Date: 20161121
  Transmission Date: 20170207
  Serious: Yes (Other)
  Sender: FDA-Public Use
  Company Number: US-SHENZHEN TECHDOW PHARMACEUTICAL CO. LTD-US-2016TEC0000033

PATIENT
  Age: 67 Year
  Sex: Female

DRUGS (2)
  1. ERYTHROPOIETIN [Suspect]
     Active Substance: ERYTHROPOIETIN
     Indication: PRODUCT USED FOR UNKNOWN INDICATION
     Dosage: UNK
  2. HEPARIN SODIUM INJECTION USP, PRESERVATIVE FREE [Suspect]
     Active Substance: HEPARIN SODIUM
     Indication: END STAGE RENAL DISEASE
     Dosage: 2000 UNIT BOLUS AT BEGINNING OF DIALYSIS; FOLLOWED BY 500 UNITS PER HR MAINTENANCE
     Dates: start: 2006

REACTIONS (5)
  - Attention deficit/hyperactivity disorder [Unknown]
  - Hypertension [Unknown]
  - Cerebral microhaemorrhage [Unknown]
  - Cognitive disorder [Unknown]
  - Amnesia [Unknown]

NARRATIVE: CASE EVENT DATE: 2006
